FAERS Safety Report 6459816-2 (Version None)
Quarter: 2009Q4

REPORT INFORMATION
  Report Type: 
  Country: None (occurrence: None)
  Receive Date: 20091128
  Receipt Date: 20091001
  Transmission Date: 20100525
  Serious: No
  Sender: FDA-Public Use
  Company Number: US-AMGEN-KDL367176

PATIENT
  Sex: Male

DRUGS (8)
  1. ENBREL [Suspect]
     Indication: DRUG USE FOR UNKNOWN INDICATION
     Route: 058
  2. DAIVONEX [Concomitant]
  3. UNSPECIFIED TOPICAL PRODUCT [Concomitant]
  4. KLONOPIN [Concomitant]
  5. FLONASE [Concomitant]
  6. PROPRANOLOL [Concomitant]
     Route: 048
  7. ZANAFLEX [Concomitant]
     Route: 048
  8. LORTAB [Concomitant]

REACTIONS (1)
  - NAUSEA [None]
